FAERS Safety Report 4610772-9 (Version None)
Quarter: 2005Q1

REPORT INFORMATION
  Report Type: 
  Country: None (occurrence: None)
  Receive Date: 20050301
  Receipt Date: 20041215
  Transmission Date: 20050727
  Serious: No
  Sender: FDA-Public Use
  Company Number: WAES 0412USA01982

PATIENT
  Age: 82 Year
  Sex: Male

DRUGS (5)
  1. ZETIA [Suspect]
     Indication: BLOOD CHOLESTEROL INCREASED
     Dosage: 10 MG/DAILY/PO
     Route: 048
     Dates: start: 20040315
  2. ACTOS [Concomitant]
  3. ALTACE [Concomitant]
  4. HYDRODIURIL [Concomitant]
  5. INSULIN [Concomitant]

REACTIONS (2)
  - BLOOD CREATINE INCREASED [None]
  - DRUG INEFFECTIVE [None]
